FAERS Safety Report 7118029-1 (Version None)
Quarter: 2010Q4

REPORT INFORMATION
  Report Type: 
  Country: None (occurrence: None)
  Receive Date: 20101118
  Receipt Date: 20101118
  Transmission Date: 20110411
  Serious: Yes (Other)
  Sender: FDA-Public Use
  Company Number: None

PATIENT
  Age: 56 Year
  Sex: Male
  Weight: 94.8018 kg

DRUGS (1)
  1. DEFINITY [Suspect]

REACTIONS (6)
  - ARTHRALGIA [None]
  - BONE PAIN [None]
  - DYSSTASIA [None]
  - FEAR [None]
  - FEELING ABNORMAL [None]
  - PAIN IN EXTREMITY [None]
